FAERS Safety Report 9186454 (Version 1)
Quarter: 2013Q1

REPORT INFORMATION
  Report Type: Spontaneous
  Country: BR (occurrence: BR)
  Receive Date: 20130325
  Receipt Date: 20130325
  Transmission Date: 20140127
  Serious: Yes (Other)
  Sender: FDA-Public Use
  Company Number: BR-JNJFOC-20130307961

PATIENT
  Sex: 0

DRUGS (5)
  1. DOXORUBICIN [Suspect]
     Indication: BREAST CANCER
     Dosage: FOR 9 WEEKS
     Route: 042
  2. PACLITAXEL [Suspect]
     Indication: BREAST CANCER
     Dosage: FOR 8 WEEKS
     Route: 065
  3. CYCLOPHOSPHAMIDE [Suspect]
     Indication: BREAST CANCER
     Route: 048
  4. TRASTUZUMAB [Suspect]
     Indication: BREAST CANCER
     Route: 065
  5. TRASTUZUMAB [Suspect]
     Indication: BREAST CANCER
     Route: 065

REACTIONS (5)
  - Palmar-plantar erythrodysaesthesia syndrome [Unknown]
  - Rash [Unknown]
  - Febrile neutropenia [Unknown]
  - Neutropenia [Unknown]
  - Pneumonitis [Recovered/Resolved]
